FAERS Safety Report 6681856-9 (Version None)
Quarter: 2010Q2

REPORT INFORMATION
  Report Type: 
  Country: None (occurrence: None)
  Receive Date: 20100414
  Receipt Date: 20100401
  Transmission Date: 20101027
  Serious: Yes (Other)
  Sender: FDA-Public Use
  Company Number: ES-ELI_LILLY_AND_COMPANY-ES201004000630

PATIENT
  Sex: Female
  Weight: 42 kg

DRUGS (3)
  1. FORTEO [Suspect]
     Indication: OSTEOPOROSIS
     Dosage: 20 UG, DAILY (1/D)
     Route: 058
     Dates: start: 20090205, end: 20100301
  2. CALCIUM [Concomitant]
     Indication: OSTEOPOROSIS
     Dosage: UNK, DAILY (1/D)
     Route: 048
     Dates: start: 20100301
  3. PANTOPRAZOL [Concomitant]
     Indication: GASTRIC ULCER
     Route: 048

REACTIONS (4)
  - CATARACT OPERATION [None]
  - GASTRIC CANCER [None]
  - HYPERTENSION [None]
  - OCULAR HYPERAEMIA [None]
